FAERS Safety Report 20842957 (Version 1)
Quarter: 2022Q2

REPORT INFORMATION
  Report Type: Spontaneous
  Country: IN (occurrence: IN)
  Receive Date: 20220518
  Receipt Date: 20220518
  Transmission Date: 20220720
  Serious: Yes (Hospitalization, Other)
  Sender: FDA-Public Use
  Company Number: IN-CIPLA LTD.-2022IN03053

PATIENT

DRUGS (1)
  1. EFAVIRENZ\LAMIVUDINE\TENOFOVIR DISOPROXIL FUMARATE [Suspect]
     Active Substance: EFAVIRENZ\LAMIVUDINE\TENOFOVIR DISOPROXIL FUMARATE
     Indication: HIV infection
     Dosage: UNK UNK, QD (AT BED TIME)
     Route: 065

REACTIONS (7)
  - Hydronephrosis [Recovering/Resolving]
  - Nephrolithiasis [Recovering/Resolving]
  - Pyelitis [Recovering/Resolving]
  - Acute kidney injury [Recovering/Resolving]
  - Femur fracture [Unknown]
  - Osteomalacia [Recovering/Resolving]
  - Fanconi syndrome [Recovering/Resolving]
